FAERS Safety Report 9695432 (Version 1)
Quarter: 2013Q4

REPORT INFORMATION
  Report Type: Spontaneous
  Country: US (occurrence: None)
  Receive Date: 20131118
  Receipt Date: 20131118
  Transmission Date: 20140711
  Serious: Yes (Life-Threatening)
  Sender: FDA-Public Use
  Company Number: None

PATIENT
  Age: 62 Year
  Sex: Female
  Weight: 76.2 kg

DRUGS (1)
  1. ALEVE 220 MG BAYER HEALTH CARE [Suspect]
     Indication: PAIN
     Route: 048
     Dates: start: 20131115, end: 20131115

REACTIONS (9)
  - Rash [None]
  - Pruritus [None]
  - Urticaria [None]
  - Nausea [None]
  - Diarrhoea [None]
  - Vomiting [None]
  - Local swelling [None]
  - Swelling face [None]
  - Lip swelling [None]
